FAERS Safety Report 8600757-X (Version None)
Quarter: 2012Q3

REPORT INFORMATION
  Report Type: 
  Country: None (occurrence: None)
  Receive Date: 20120806
  Receipt Date: 20120727
  Transmission Date: 20120928
  Serious: Yes (Other)
  Sender: FDA-Public Use
  Company Number: GER/UKI/12/0025216

PATIENT
  Age: 36 Year
  Sex: Female

DRUGS (6)
  1. CLOZARIL [Suspect]
     Indication: SCHIZOPHRENIA
     Dosage: ORAL
     Route: 048
     Dates: start: 20111118
  2. MIRTAZAPINE [Concomitant]
  3. RISPERIDONE [Suspect]
     Indication: SCHIZOPHRENIA
     Dosage: 2 MG, 1 IN 1 D, ORAL
     Route: 048
  4. VENLAFAXINE HCL [Suspect]
     Indication: DEPRESSED MOOD
     Dosage: 150 MG, 1 IN 1 D, ORAL
     Route: 048
  5. HYOSCINE HYDROBROMIDE (HYOSCINE HYDROBROMIDE) [Suspect]
     Indication: PRODUCT USED FOR UNKNOWN INDICATION
     Dosage: 600 MCG, 1 IN 1 D, ORAL
     Route: 048
  6. DIAZEPAM [Concomitant]

REACTIONS (3)
  - TACHYCARDIA [None]
  - ANXIETY [None]
  - THERAPEUTIC RESPONSE DECREASED [None]
